FAERS Safety Report 5227239-X (Version None)
Quarter: 2007Q1

REPORT INFORMATION
  Report Type: 
  Country: None (occurrence: None)
  Receive Date: 20070202
  Receipt Date: 20070125
  Transmission Date: 20070707
  Serious: Yes (Hospitalization)
  Sender: FDA-Public Use
  Company Number: FR-AVENTIS-200710312FR

PATIENT
  Age: 75 Year
  Sex: Female
  Weight: 82 kg

DRUGS (11)
  1. ARAVA [Suspect]
     Indication: RHEUMATOID ARTHRITIS
     Route: 048
     Dates: start: 20040101, end: 20061211
  2. BIRODOGYL [Suspect]
     Indication: DENTAL CARE
     Route: 048
     Dates: start: 20061128, end: 20061204
  3. DIANTALVIC [Suspect]
     Indication: DENTAL CARE
     Route: 048
     Dates: start: 20061128, end: 20061204
  4. ALODONT [Concomitant]
     Indication: DENTAL CARE
     Route: 002
     Dates: start: 20061128, end: 20061204
  5. ACTONEL [Concomitant]
     Route: 048
  6. CORTANCYL [Concomitant]
     Route: 048
  7. LASILIX                            /00032601/ [Concomitant]
     Route: 048
  8. ZANIDIP [Concomitant]
     Route: 048
  9. ACUITEL                            /00810601/ [Concomitant]
     Route: 048
  10. ZYLORIC [Concomitant]
     Route: 048
  11. CERVOXAN [Concomitant]
     Route: 048
     Dates: start: 20061107

REACTIONS (6)
  - ALANINE AMINOTRANSFERASE INCREASED [None]
  - ASPARTATE AMINOTRANSFERASE INCREASED [None]
  - BLOOD ALKALINE PHOSPHATASE INCREASED [None]
  - GAMMA-GLUTAMYLTRANSFERASE INCREASED [None]
  - HEPATITIS [None]
  - MIXED HEPATOCELLULAR-CHOLESTATIC INJURY [None]
